FAERS Safety Report 10151423 (Version 1)
Quarter: 2014Q2

REPORT INFORMATION
  Report Type: Spontaneous
  Country: US (occurrence: US)
  Receive Date: 20140504
  Receipt Date: 20140504
  Transmission Date: 20141212
  Serious: No
  Sender: FDA-Public Use
  Company Number: US-009507513-1404USA013836

PATIENT
  Sex: Female

DRUGS (5)
  1. JANUVIA [Suspect]
     Route: 048
  2. VICTOZA [Suspect]
  3. METFORMIN [Suspect]
  4. GLYBURIDE [Suspect]
  5. INSULIN [Suspect]

REACTIONS (1)
  - Drug hypersensitivity [Unknown]
